FAERS Safety Report 9055653 (Version 1)
Quarter: 2013Q1

REPORT INFORMATION
  Report Type: Report from Study
  Country: US (occurrence: US)
  Receive Date: 20130206
  Receipt Date: 20130206
  Transmission Date: 20140127
  Serious: Yes (Other)
  Sender: FDA-Public Use
  Company Number: US-ABBOTT-13P-163-1043054-00

PATIENT
  Sex: Female
  Weight: 108.96 kg

DRUGS (16)
  1. HUMIRA [Suspect]
     Indication: PSORIATIC ARTHROPATHY
     Route: 058
     Dates: start: 201107, end: 201203
  2. HUMIRA [Suspect]
     Route: 058
     Dates: start: 201203
  3. CALCIUM [Suspect]
     Indication: MINERAL SUPPLEMENTATION
  4. VITAMIN D [Suspect]
     Indication: VITAMIN SUPPLEMENTATION
  5. METFORMIN [Concomitant]
     Indication: DIABETES MELLITUS
     Dosage: DAILY
  6. GLIMEPIRIDE [Concomitant]
     Indication: PRODUCT USED FOR UNKNOWN INDICATION
     Dosage: DAILY
  7. ASPIRIN [Concomitant]
     Indication: PRODUCT USED FOR UNKNOWN INDICATION
     Dosage: DAILY
  8. METHOTREXATE [Concomitant]
     Indication: PRODUCT USED FOR UNKNOWN INDICATION
     Dosage: 2.5MG (4) ON FRIDAY AND SATURDAY ONLY
  9. FOLIC ACID [Concomitant]
     Indication: PRODUCT USED FOR UNKNOWN INDICATION
     Dosage: DAILY
  10. FLUOXETINE [Concomitant]
     Indication: PRODUCT USED FOR UNKNOWN INDICATION
     Dosage: 40MG ONCE DAILY AND 20 MG ONCE DAILY
  11. PREDNISONE [Concomitant]
     Indication: PRODUCT USED FOR UNKNOWN INDICATION
     Dosage: 5MG DAILY PLUS 2.5MG EVERY OTHER DAY
  12. LISINOPRIL [Concomitant]
     Indication: BLOOD PRESSURE
  13. PRILOSEC [Concomitant]
     Indication: PRODUCT USED FOR UNKNOWN INDICATION
  14. PRAVASTATIN [Concomitant]
     Indication: PRODUCT USED FOR UNKNOWN INDICATION
     Dosage: AT BEDTIME
  15. HYDROCHLOROTH [Concomitant]
     Indication: PRODUCT USED FOR UNKNOWN INDICATION
     Dosage: DAILY
  16. GABAPENTIN [Concomitant]
     Indication: RESTLESS LEGS SYNDROME
     Dosage: 600MG (3) DAILY

REACTIONS (3)
  - Intraocular pressure test [Unknown]
  - Nephrolithiasis [Unknown]
  - Arthralgia [Unknown]
